FAERS Safety Report 4785765-1 (Version None)
Quarter: 2005Q4

REPORT INFORMATION
  Report Type: 
  Country: None (occurrence: None)
  Receive Date: 20051003
  Receipt Date: 20050926
  Transmission Date: 20060501
  Serious: Yes (Hospitalization)
  Sender: FDA-Public Use
  Company Number: US-MERCK-0509USA03883

PATIENT
  Sex: Female

DRUGS (4)
  1. VIOXX [Suspect]
     Indication: ARTHRALGIA
     Route: 001
     Dates: end: 20030101
  2. VIOXX [Suspect]
     Route: 048
     Dates: start: 20030101
  3. VIOXX [Suspect]
     Indication: BACK PAIN
     Route: 001
     Dates: end: 20030101
  4. VIOXX [Suspect]
     Route: 048
     Dates: start: 20030101

REACTIONS (5)
  - ASTHENIA [None]
  - JOINT DISLOCATION [None]
  - MYOCARDIAL INFARCTION [None]
  - OSTEOARTHRITIS [None]
  - PERONEAL NERVE PALSY [None]
